FAERS Safety Report 9701735 (Version 2)
Quarter: 2014Q1

REPORT INFORMATION
  Report Type: Spontaneous
  Country: US (occurrence: US)
  Receive Date: 20131121
  Receipt Date: 20140307
  Transmission Date: 20141002
  Serious: Yes (Other)
  Sender: FDA-Public Use
  Company Number: US-ASTRAZENECA-2013SE85340

PATIENT
  Sex: Male
  Weight: 176.9 kg

DRUGS (14)
  1. SYMBICORT PMDI [Suspect]
     Indication: WHEEZING
     Dosage: 80/4.5 UG, 2 PUFFS TWICE DAILY
     Route: 055
     Dates: start: 2013
  2. SYMBICORT PMDI [Suspect]
     Indication: WHEEZING
     Dosage: 80/4.5 UG AS NEEDED
     Route: 055
     Dates: start: 2013
  3. SYMBICORT PMDI [Suspect]
     Indication: WHEEZING
     Dosage: 80/4.5 UG, 2 PUFFS TWO TIMES A DAY
     Route: 055
  4. PLAVIX [Concomitant]
  5. BABY ASPIRIN [Concomitant]
  6. LOSARTAN [Concomitant]
  7. METOPROLOL TARTRATE [Concomitant]
     Dosage: 25 MG IN THE AM AND PM
  8. METFORMIN [Concomitant]
     Dosage: 1000 MG IN THE AM AND PM
  9. LOVALOG [Concomitant]
     Dosage: 70/30, 65 IN THE AM, 20 AT NOON, AND 120 AT NIGHT
  10. VITAMIN D3 [Concomitant]
     Dosage: 10000
  11. CITRACAL [Concomitant]
     Dosage: MAXIMUM STRENGTH
  12. CENTRUM SILVER [Concomitant]
     Dosage: DAILY
  13. GABAPENTIN [Concomitant]
  14. FEROSIMIDE [Concomitant]
     Dosage: 40 MG IN THE AM

REACTIONS (9)
  - Cataract [Unknown]
  - Blindness [Unknown]
  - Procedural haemorrhage [Unknown]
  - Pain [Unknown]
  - Arthralgia [Unknown]
  - Device misuse [Unknown]
  - Drug dose omission [Unknown]
  - Off label use [Unknown]
  - Off label use [Unknown]
